FAERS Safety Report 9819492 (Version 3)
Quarter: 2015Q1

REPORT INFORMATION
  Report Type: Spontaneous
  Country: US (occurrence: US)
  Receive Date: 20140115
  Receipt Date: 20150122
  Transmission Date: 20150721
  Serious: Yes (Death, Life-Threatening, Hospitalization, Other)
  Sender: FDA-Public Use
  Company Number: US-009507513-1401USA004906

PATIENT
  Sex: Female
  Weight: 76.64 kg

DRUGS (7)
  1. ZYRTEC [Concomitant]
     Active Substance: CETIRIZINE HYDROCHLORIDE
     Indication: HYPERSENSITIVITY
     Dosage: 10 MG, DAILY
  2. JANUVIA [Suspect]
     Active Substance: SITAGLIPTIN PHOSPHATE
     Indication: DIABETES MELLITUS INADEQUATE CONTROL
  3. ASPIRIN. [Concomitant]
     Active Substance: ASPIRIN
     Indication: THALAMIC INFARCTION
     Dosage: 81-325 MG, DAILY
     Dates: start: 201003
  4. METFORMIN [Concomitant]
     Active Substance: METFORMIN HYDROCHLORIDE
     Indication: DIABETES MELLITUS INADEQUATE CONTROL
  5. JANUVIA [Suspect]
     Active Substance: SITAGLIPTIN PHOSPHATE
     Indication: TYPE 2 DIABETES MELLITUS
     Dosage: 100 MG, ONCE DAILY
     Route: 048
     Dates: start: 201004, end: 20101002
  6. METFORMIN [Concomitant]
     Active Substance: METFORMIN HYDROCHLORIDE
     Indication: TYPE 2 DIABETES MELLITUS
     Dosage: 850 MG, TID WITH MEALS
  7. VERAPAMIL [Concomitant]
     Active Substance: VERAPAMIL HYDROCHLORIDE
     Dosage: 240 MG, DAILY

REACTIONS (28)
  - Metastases to peritoneum [Unknown]
  - Cardio-respiratory arrest [Fatal]
  - Transient ischaemic attack [Unknown]
  - Peripheral coldness [Unknown]
  - Uterine leiomyoma [Unknown]
  - Arthritis [Unknown]
  - Anaemia [Unknown]
  - Lung infiltration [Unknown]
  - Hysterectomy [Unknown]
  - Constipation [Unknown]
  - Gastrooesophageal reflux disease [Unknown]
  - Musculoskeletal pain [Unknown]
  - Increased tendency to bruise [Unknown]
  - Metastases to lung [Unknown]
  - Cerebrovascular accident [Unknown]
  - Anuria [Unknown]
  - Hyperlipidaemia [Unknown]
  - Ear infection [Unknown]
  - Skin disorder [Unknown]
  - Ascites [Unknown]
  - Adenocarcinoma pancreas [Fatal]
  - Renal failure [Fatal]
  - Muscle spasms [Unknown]
  - Renal cyst [Unknown]
  - Pleural effusion [Unknown]
  - Hiatus hernia [Unknown]
  - Metastases to liver [Unknown]
  - Drug ineffective [Unknown]

NARRATIVE: CASE EVENT DATE: 2011
